FAERS Safety Report 6303954-1 (Version None)
Quarter: 2009Q3

REPORT INFORMATION
  Report Type: 
  Country: None (occurrence: None)
  Receive Date: 20090805
  Receipt Date: 20090722
  Transmission Date: 20100115
  Serious: Yes (Other)
  Sender: FDA-Public Use
  Company Number: DE-1170430

PATIENT

DRUGS (1)
  1. FLUORESCEIN SODIUM INJECTION           LOT# 16040F [Suspect]
     Dosage: NITRAVENOUS BOLUS
     Route: 040

REACTIONS (1)
  - LOSS OF CONSCIOUSNESS [None]
